FAERS Safety Report 18011499 (Version 1)
Quarter: 2020Q3

REPORT INFORMATION
  Report Type: Spontaneous
  Country: SE (occurrence: SE)
  Receive Date: 20200713
  Receipt Date: 20200713
  Transmission Date: 20201103
  Serious: Yes (Congenital Anomaly)
  Sender: FDA-Public Use
  Company Number: SE-UCBSA-2020026393

PATIENT
  Sex: Female

DRUGS (3)
  1. THERALEN [Concomitant]
     Active Substance: TRIMEPRAZINE
     Indication: PRODUCT USED FOR UNKNOWN INDICATION
     Dosage: UNDER HELA GRAVIDITETEN
     Route: 064
  2. KEPPRA [Suspect]
     Active Substance: LEVETIRACETAM
     Indication: EPILEPSY
     Dosage: 500 MG X 2 T.OM. 2018?05?20, 500 MG PLUS750  MG FROM 2018?05?21
     Route: 064
     Dates: start: 201902
  3. SERTRALINE [Concomitant]
     Active Substance: SERTRALINE HYDROCHLORIDE
     Indication: PRODUCT USED FOR UNKNOWN INDICATION
     Dosage: UNDER HELA GRAVIDITETEN
     Route: 064

REACTIONS (2)
  - Maternal exposure during pregnancy [Unknown]
  - Heart disease congenital [Unknown]

NARRATIVE: CASE EVENT DATE: 201902
